FAERS Safety Report 12557011 (Version 1)
Quarter: 2016Q3

REPORT INFORMATION
  Report Type: Spontaneous
  Country: US (occurrence: US)
  Receive Date: 20160714
  Receipt Date: 20160714
  Transmission Date: 20161109
  Serious: No
  Sender: FDA-Public Use
  Company Number: US-BIOGEN-2016BI00262770

PATIENT
  Sex: Female

DRUGS (2)
  1. TECFIDERA [Suspect]
     Active Substance: DIMETHYL FUMARATE
     Dosage: MAINTENANCE DOSE
     Route: 048
     Dates: start: 20160701
  2. TECFIDERA [Suspect]
     Active Substance: DIMETHYL FUMARATE
     Indication: MULTIPLE SCLEROSIS
     Dosage: STARTING DOSE
     Route: 048
     Dates: start: 20160624, end: 20160701

REACTIONS (7)
  - Lip pain [Recovered/Resolved]
  - Pain [Unknown]
  - Gastric dilatation [Unknown]
  - Abnormal faeces [Unknown]
  - Diarrhoea [Recovered/Resolved]
  - Glossodynia [Recovered/Resolved]
  - Vomiting [Recovered/Resolved]
